FAERS Safety Report 8512357-0 (Version None)
Quarter: 2012Q3

REPORT INFORMATION
  Report Type: 
  Country: None (occurrence: None)
  Receive Date: 20120716
  Receipt Date: 20120711
  Transmission Date: 20120928
  Serious: Yes (Hospitalization, Disabling, Other)
  Sender: FDA-Public Use
  Company Number: PHEH2011US03638

PATIENT
  Sex: Female

DRUGS (11)
  1. GILENYA [Suspect]
     Indication: MULTIPLE SCLEROSIS
     Dosage: 0.5 MG, DAILY
     Route: 048
     Dates: start: 20110903, end: 20110911
  2. GILENYA [Suspect]
     Dates: start: 20110912
  3. METOPROLOL TARTRATE [Concomitant]
  4. FAMPRIDINE [Concomitant]
     Dosage: UNK UKN, UNK
  5. BACLOFEN [Concomitant]
     Indication: MULTIPLE SCLEROSIS
     Dosage: 40 (UNITS UNKNOWN), ONCE DAILY
     Route: 048
  6. LYRICA [Concomitant]
     Dosage: UNK UKN, UNK
  7. SERTRALINE HYDROCHLORIDE [Concomitant]
     Dosage: UNK UKN, UNK
  8. NITROFURANTOIN [Concomitant]
     Dosage: UNK UKN, UNK
  9. NEURONTIN [Concomitant]
     Indication: MULTIPLE SCLEROSIS
     Dosage: 600 (UNKNOWN UNITS), ONCE DAILY
     Route: 048
  10. TOPRAL [Concomitant]
     Dosage: UNK UKN, UNK
  11. AMOXICILLIN [Concomitant]

REACTIONS (12)
  - MULTIPLE SCLEROSIS RELAPSE [None]
  - FEAR [None]
  - CENTRAL NERVOUS SYSTEM LESION [None]
  - ABASIA [None]
  - PAIN [None]
  - PARALYSIS [None]
  - THORACIC SPINE FLATTENING [None]
  - PARAPLEGIA [None]
  - HYPOAESTHESIA [None]
  - MUSCLE SPASTICITY [None]
  - MUSCULAR WEAKNESS [None]
  - MUSCLE TIGHTNESS [None]
